FAERS Safety Report 6934698-0 (Version None)
Quarter: 2010Q3

REPORT INFORMATION
  Report Type: 
  Country: None (occurrence: None)
  Receive Date: 20100820
  Receipt Date: 20100812
  Transmission Date: 20110219
  Serious: Yes (Hospitalization)
  Sender: FDA-Public Use
  Company Number: AR-AMGEN-QUU432447

PATIENT
  Sex: Female
  Weight: 81 kg

DRUGS (6)
  1. ENBREL [Suspect]
     Indication: RHEUMATOID ARTHRITIS
     Route: 058
     Dates: start: 20090701, end: 20100601
  2. INSULIN [Concomitant]
     Indication: DIABETES MELLITUS
  3. LYRICA [Concomitant]
     Indication: NEURALGIA
     Route: 048
  4. HAPILUX [Concomitant]
     Indication: NEURALGIA
     Route: 048
  5. ENALAPRIL MALEATE [Concomitant]
     Indication: HYPERTENSION
     Route: 048
  6. ATENOLOL [Concomitant]
     Indication: HYPERTENSION
     Dosage: 50 MG TABLET DIVIDED IN TWO TAKES DAILY
     Route: 048

REACTIONS (1)
  - DEEP VEIN THROMBOSIS [None]
